FAERS Safety Report 15665848 (Version 1)
Quarter: 2018Q4

REPORT INFORMATION
  Report Type: Spontaneous
  Country: CN (occurrence: CN)
  Receive Date: 20181128
  Receipt Date: 20181128
  Transmission Date: 20190205
  Serious: Yes (Hospitalization, Other)
  Sender: FDA-Public Use
  Company Number: CN-PFIZER INC-2018487307

PATIENT
  Age: 85 Year
  Sex: Male
  Weight: 52 kg

DRUGS (2)
  1. CORDARONE [Suspect]
     Active Substance: AMIODARONE HYDROCHLORIDE
     Indication: ARRHYTHMIA
     Dosage: 0.2 G, DAILY
     Route: 048
     Dates: start: 20180301, end: 20180309
  2. ANISODAMINE [Concomitant]
     Active Substance: ANISODAMINE
     Indication: HEART RATE INCREASED
     Dosage: UNK

REACTIONS (1)
  - Amaurosis fugax [Recovering/Resolving]

NARRATIVE: CASE EVENT DATE: 20180309
